FAERS Safety Report 15540361 (Version 1)
Quarter: 2018Q4

REPORT INFORMATION
  Report Type: Spontaneous
  Country: US (occurrence: US)
  Receive Date: 20181022
  Receipt Date: 20181022
  Transmission Date: 20190205
  Serious: Yes (Other)
  Sender: FDA-Public Use
  Company Number: None

PATIENT
  Age: 5 Year
  Sex: Male
  Weight: 19.35 kg

DRUGS (1)
  1. IBUPROFEN CHILDRENS [Suspect]
     Active Substance: IBUPROFEN
     Indication: HEADACHE
     Dosage: ?          QUANTITY:7.5 ML;?
     Route: 048
     Dates: start: 20181008, end: 20181014

REACTIONS (4)
  - Dyspnoea [None]
  - Flushing [None]
  - Urticaria [None]
  - Use of accessory respiratory muscles [None]

NARRATIVE: CASE EVENT DATE: 20181014
